FAERS Safety Report 4531732-2 (Version None)
Quarter: 2004Q4

REPORT INFORMATION
  Report Type: 
  Country: None (occurrence: None)
  Receive Date: 20041216
  Receipt Date: 20041115
  Transmission Date: 20050328
  Serious: Yes (Hospitalization)
  Sender: FDA-Public Use
  Company Number: 235643K04USA

PATIENT
  Age: 58 Year
  Sex: Female

DRUGS (4)
  1. REBIF [Suspect]
     Indication: MULTIPLE SCLEROSIS
     Dosage: 44 MCG, 3 IN 1 WEEKS, SUBCUTANEOUS
     Route: 058
     Dates: start: 20040503
  2. LEXAPRO [Concomitant]
  3. FERROSEQUELS (ALL OTHER THERAPEUTIC PRODUCTS) [Concomitant]
  4. MULTIVITAMIN (MULTIVITAMINS) [Concomitant]

REACTIONS (8)
  - CONTUSION [None]
  - IMMUNE SYSTEM DISORDER [None]
  - INFECTION [None]
  - JOINT INJURY [None]
  - LIVER FUNCTION TEST ABNORMAL [None]
  - RASH SCALY [None]
  - SKIN DISCOLOURATION [None]
  - WHITE BLOOD CELL COUNT DECREASED [None]
